FAERS Safety Report 8438600-4 (Version None)
Quarter: 2012Q2

REPORT INFORMATION
  Report Type: 
  Country: None (occurrence: None)
  Receive Date: 20120615
  Receipt Date: 20120611
  Transmission Date: 20120825
  Serious: No
  Sender: FDA-Public Use
  Company Number: US-PFIZER INC-2012134760

PATIENT
  Sex: Female
  Weight: 91 kg

DRUGS (6)
  1. ZESTRIL [Concomitant]
     Indication: HYPERTENSION
     Dosage: 5 MG, 1X/DAY
  2. CHANTIX [Suspect]
     Indication: SMOKING CESSATION THERAPY
     Dosage: 0.5 MG, 1X/DAY
     Dates: start: 20120603, end: 20120601
  3. METFORMIN [Concomitant]
     Indication: DIABETES MELLITUS
     Dosage: 500 MG, 1X/DAY
  4. GABAPENTIN [Concomitant]
     Indication: NEUROPATHY PERIPHERAL
     Dosage: 200 MG, 1X/DAY
  5. CHANTIX [Suspect]
     Dosage: UNK
     Dates: start: 20120601
  6. EFFEXOR [Concomitant]
     Indication: DEPRESSION
     Dosage: 37.5 MG, 1X/DAY

REACTIONS (3)
  - FATIGUE [None]
  - PRURITUS [None]
  - HEADACHE [None]
